FAERS Safety Report 6999592 (Version 4)
Quarter: 2012Q4

REPORT INFORMATION
  Report Type: 
  Country: DK (occurrence: DK)
  Receive Date: 20090521
  Receipt Date: 20121205
  Transmission Date: 20130627
  Serious: Yes (Death, Hospitalization, Other)
  Sender: FDA-Public Use
  Company Number: DK-ELI_LILLY_AND_COMPANY-DK200905002691

PATIENT
  Age: 34 Year
  Sex: Female
  Weight: 82 kg

DRUGS (9)
  1. ZYPREXA [Suspect]
     Indication: PSYCHOTIC DISORDER
     Dosage: 5 mg, as needed
     Route: 065
     Dates: start: 20080818, end: 20081029
  2. SERDOLECT [Concomitant]
     Indication: SCHIZOPHRENIA, PARANOID TYPE
     Dosage: 4 mg, unknown
     Route: 048
     Dates: start: 20080808
  3. SERDOLECT [Concomitant]
     Dosage: 8 mg, unknown
     Route: 048
     Dates: start: 200808
  4. SERDOLECT [Concomitant]
     Dosage: 16 mg, unknown
     Route: 048
     Dates: start: 200808
  5. SERDOLECT [Concomitant]
     Dosage: 24 mg, daily (1/D)
     Route: 048
     Dates: start: 200808
  6. CIPRALEX [Concomitant]
     Indication: DEPRESSIVE SYMPTOM
     Dosage: 10 mg, unknown
     Route: 065
     Dates: start: 20080811
  7. CIPRALEX [Concomitant]
     Dosage: 20 mg, daily (1/D)
     Route: 065
     Dates: start: 20080901
  8. CORODIL [Concomitant]
     Indication: ESSENTIAL HYPERTENSION
     Dosage: 15 mg, daily (1/D)
     Route: 065
     Dates: start: 200710
  9. GESTONETTE [Concomitant]
     Indication: CONTRACEPTION
     Dosage: UNK, unknown
     Route: 065

REACTIONS (4)
  - Death [Fatal]
  - Hospitalisation [Unknown]
  - Electrocardiogram QT prolonged [Unknown]
  - Arteriosclerosis coronary artery [Unknown]
